FAERS Safety Report 17509535 (Version 1)
Quarter: 2020Q1

REPORT INFORMATION
  Report Type: Spontaneous
  Country: GB (occurrence: GB)
  Receive Date: 20200306
  Receipt Date: 20200306
  Transmission Date: 20200409
  Serious: Yes (Other)
  Sender: FDA-Public Use
  Company Number: GB-MYLANLABS-2020M1023065

PATIENT
  Age: 33 Year
  Sex: Female
  Weight: 140 kg

DRUGS (3)
  1. METFORMIN [Suspect]
     Active Substance: METFORMIN HYDROCHLORIDE
     Indication: DIABETES MELLITUS
     Dosage: 500 MILLIGRAM, QD
     Route: 048
     Dates: start: 20160330, end: 20160713
  2. BOLAMYN [Suspect]
     Active Substance: METFORMIN HYDROCHLORIDE
     Indication: DIABETES MELLITUS
     Dosage: 1500 MILLIGRAM, QD(500MG IN MORNING, 1000MG AT TEATIME )
     Route: 048
     Dates: start: 20160713, end: 20160719
  3. NORETHISTERONE [Concomitant]
     Active Substance: NORETHINDRONE
     Dosage: UNK

REACTIONS (4)
  - Headache [Unknown]
  - Chest pain [Unknown]
  - Blood pressure increased [Recovered/Resolved with Sequelae]
  - Dyspnoea [Unknown]
